FAERS Safety Report 21543481 (Version 2)
Quarter: 2022Q4

REPORT INFORMATION
  Report Type: Spontaneous
  Country: US (occurrence: None)
  Receive Date: 20221102
  Receipt Date: 20221214
  Transmission Date: 20230113
  Serious: Yes (Hospitalization, Other)
  Sender: FDA-Public Use
  Company Number: 2022A357057

PATIENT
  Age: 929 Month
  Sex: Female
  Weight: 82.1 kg

DRUGS (1)
  1. CALQUENCE [Suspect]
     Active Substance: ACALABRUTINIB
     Indication: Chronic lymphocytic leukaemia
     Route: 048
     Dates: start: 2020

REACTIONS (11)
  - Embolic stroke [Recovered/Resolved with Sequelae]
  - Dysarthria [Recovered/Resolved]
  - Asthenia [Recovered/Resolved]
  - Atrial fibrillation [Recovered/Resolved]
  - Haemorrhage [Unknown]
  - Fall [Recovered/Resolved]
  - Pyrexia [Recovered/Resolved]
  - Dysgraphia [Not Recovered/Not Resolved]
  - Abnormal behaviour [Recovered/Resolved]
  - Sinusitis [Recovered/Resolved]
  - Wound haemorrhage [Unknown]

NARRATIVE: CASE EVENT DATE: 20220601
